FAERS Safety Report 5311081-5 (Version None)
Quarter: 2007Q2

REPORT INFORMATION
  Report Type: 
  Country: None (occurrence: None)
  Receive Date: 20070427
  Receipt Date: 20070427
  Transmission Date: 20071010
  Serious: Yes (Life-Threatening, Hospitalization)
  Sender: FDA-Public Use
  Company Number: None

PATIENT
  Age: 21 Year
  Sex: Female
  Weight: 102 kg

DRUGS (1)
  1. NUVARING [Suspect]
     Indication: CONTRACEPTION
     Dosage: 1 DAILY

REACTIONS (5)
  - CHEST PAIN [None]
  - COAGULOPATHY [None]
  - DYSPNOEA [None]
  - HYPERHIDROSIS [None]
  - PULMONARY EMBOLISM [None]
